FAERS Safety Report 6244396-7 (Version None)
Quarter: 2009Q2

REPORT INFORMATION
  Report Type: 
  Country: None (occurrence: None)
  Receive Date: 20090625
  Receipt Date: 20090617
  Transmission Date: 20091009
  Serious: Yes (Life-Threatening, Hospitalization)
  Sender: FDA-Public Use
  Company Number: FR-WYE-G03865109

PATIENT
  Age: 50 Year
  Sex: Female
  Weight: 35 kg

DRUGS (12)
  1. EFFEXOR [Suspect]
     Indication: DEPRESSION
     Dosage: OVERDOSE AMOUNT WAS 1050 MG
     Route: 048
     Dates: start: 20090517, end: 20090517
  2. NORADRENALINE [Suspect]
     Indication: HYPOTENSION
     Dosage: UNKNOWN
     Route: 042
     Dates: start: 20090518, end: 20090518
  3. HAVLANE [Suspect]
     Indication: ANXIETY
     Dosage: OVERDOSE AMOUNT WAS 8 MG
     Route: 048
     Dates: start: 20090517, end: 20090517
  4. XANAX [Suspect]
     Indication: ANXIETY
     Dosage: OVERDOSE AMOUNT WAS 0.50 MG
     Route: 048
     Dates: start: 20090517, end: 20090517
  5. GUTRON [Concomitant]
     Dosage: UNKNOWN
  6. CRESTOR [Concomitant]
     Route: 048
  7. NEXIUM [Concomitant]
     Route: 048
  8. PLAVIX [Concomitant]
     Route: 048
  9. KARDEGIC [Concomitant]
     Route: 048
  10. VASTAREL [Concomitant]
     Dosage: 70 MG TOTAL DAILY
     Route: 048
  11. THERALENE [Suspect]
     Indication: ANXIETY
     Dosage: OVERDOSE AMOUNT WAS UNKNOWN
     Route: 048
     Dates: start: 20090517, end: 20090517
  12. ALCOHOL [Suspect]
     Dosage: OVERDOSE AMOUNT WAS UNKNOWN
     Route: 048
     Dates: start: 20090517, end: 20090517

REACTIONS (6)
  - CARDIAC FAILURE ACUTE [None]
  - HYPOTENSION [None]
  - MULTIPLE DRUG OVERDOSE INTENTIONAL [None]
  - MYOCARDIAL ISCHAEMIA [None]
  - MYOPERICARDITIS [None]
  - SOMNOLENCE [None]
